FAERS Safety Report 7350011-1 (Version None)
Quarter: 2011Q1

REPORT INFORMATION
  Report Type: 
  Country: None (occurrence: None)
  Receive Date: 20110314
  Receipt Date: 20110302
  Transmission Date: 20110831
  Serious: Yes (Other)
  Sender: FDA-Public Use
  Company Number: GB-BRISTOL-MYERS SQUIBB COMPANY-15590045

PATIENT
  Sex: Male

DRUGS (2)
  1. ONGLYZA [Suspect]
  2. VILDAGLIPTIN [Suspect]

REACTIONS (1)
  - LIP SWELLING [None]
